FAERS Safety Report 18619620 (Version 1)
Quarter: 2020Q4

REPORT INFORMATION
  Report Type: Spontaneous
  Country: US (occurrence: US)
  Receive Date: 20201215
  Receipt Date: 20201215
  Transmission Date: 20210114
  Serious: Yes (Other)
  Sender: FDA-Public Use
  Company Number: US-PFIZER INC-2019430777

PATIENT
  Age: 76 Year
  Sex: Male
  Weight: 109 kg

DRUGS (10)
  1. LIPITOR [Suspect]
     Active Substance: ATORVASTATIN CALCIUM
     Dosage: UNK, ALTERNATE DAY (TO HIM EVERY OTHER DAY)
  2. LIPITOR [Suspect]
     Active Substance: ATORVASTATIN CALCIUM
     Dosage: UNK (CUT THEM IN HALF)
  3. NITROSTAT [Suspect]
     Active Substance: NITROGLYCERIN
     Dosage: UNK, AS NEEDED
  4. PLAVIX [Concomitant]
     Active Substance: CLOPIDOGREL BISULFATE
     Dosage: UNK, [HE HAS BEEN ON AND OFF]
  5. PRAVASTATIN. [Concomitant]
     Active Substance: PRAVASTATIN
     Dosage: UNK
  6. LIPITOR [Suspect]
     Active Substance: ATORVASTATIN CALCIUM
     Indication: CARDIAC DISORDER
     Dosage: 80 MG, 1X/DAY
     Route: 048
     Dates: start: 2006
  7. LIPITOR [Suspect]
     Active Substance: ATORVASTATIN CALCIUM
     Dosage: 40 MG, ALTERNATE DAY [1/2 A TABLET EVERY OTHER DAY]
  8. LIPITOR [Suspect]
     Active Substance: ATORVASTATIN CALCIUM
     Dosage: UNK (HALF A TABS TWO FOR 2 WEEKS)
     Dates: start: 2020
  9. PLAVIX [Concomitant]
     Active Substance: CLOPIDOGREL BISULFATE
     Indication: CARDIAC DISORDER
     Dosage: 75 MG, 1X/DAY
     Route: 048
  10. ACCUPRIL [Suspect]
     Active Substance: QUINAPRIL HYDROCHLORIDE
     Dosage: UNK

REACTIONS (2)
  - Intentional product misuse [Unknown]
  - Dacryostenosis acquired [Unknown]
